FAERS Safety Report 4392186-2 (Version None)
Quarter: 2004Q3

REPORT INFORMATION
  Report Type: 
  Country: None (occurrence: None)
  Receive Date: 20040708
  Receipt Date: 20040624
  Transmission Date: 20050211
  Serious: Yes (Hospitalization)
  Sender: FDA-Public Use
  Company Number: 200416410GDDC

PATIENT
  Age: 48 Year
  Sex: Female
  Weight: 67 kg

DRUGS (4)
  1. DOCETAXEL [Suspect]
     Indication: BREAST CANCER METASTATIC
     Dates: start: 20040301, end: 20040423
  2. MULTI-VITAMINS [Suspect]
     Indication: BREAST CANCER METASTATIC
     Route: 048
     Dates: start: 20040301
  3. SPECTRAPAIN [Concomitant]
     Indication: PAIN
     Dosage: DOSE: UNK
     Dates: start: 20020801
  4. MULTI-VITAMINS [Concomitant]
     Dosage: DOSE: UNK

REACTIONS (11)
  - ABASIA [None]
  - ALANINE AMINOTRANSFERASE INCREASED [None]
  - BLOOD UREA INCREASED [None]
  - CUTANEOUS LUPUS ERYTHEMATOSUS [None]
  - EOSINOPHIL COUNT DECREASED [None]
  - GAMMA-GLUTAMYLTRANSFERASE INCREASED [None]
  - HAEMOGLOBIN DECREASED [None]
  - LYMPHOCYTE COUNT DECREASED [None]
  - MONOCYTE COUNT DECREASED [None]
  - NEUTROPENIC SEPSIS [None]
  - REFUSAL OF TREATMENT BY PATIENT [None]
